FAERS Safety Report 18353868 (Version 1)
Quarter: 2020Q4

REPORT INFORMATION
  Report Type: Spontaneous
  Country: US (occurrence: US)
  Receive Date: 20201006
  Receipt Date: 20201006
  Transmission Date: 20210114
  Serious: Yes (Hospitalization)
  Sender: FDA-Public Use
  Company Number: US-ROCHE-2685683

PATIENT
  Age: 52 Year
  Sex: Female
  Weight: 75.36 kg

DRUGS (18)
  1. METOCLOPRAMIDE. [Concomitant]
     Active Substance: METOCLOPRAMIDE
     Dates: start: 20160201
  2. VESICARE [Concomitant]
     Active Substance: SOLIFENACIN SUCCINATE
     Dates: start: 20160201
  3. MIRALAX [Concomitant]
     Active Substance: POLYETHYLENE GLYCOL 3350
  4. AXERT [Concomitant]
     Active Substance: ALMOTRIPTAN MALATE
     Dates: start: 20160201
  5. FUROSEMIDE. [Concomitant]
     Active Substance: FUROSEMIDE
     Dates: start: 20160607
  6. BACLOFEN. [Concomitant]
     Active Substance: BACLOFEN
     Dates: start: 20120323
  7. XARELTO [Concomitant]
     Active Substance: RIVAROXABAN
     Dates: start: 20160201
  8. OXYCONTIN [Concomitant]
     Active Substance: OXYCODONE HYDROCHLORIDE
     Dates: start: 20120323
  9. NORETHINDRONE. [Concomitant]
     Active Substance: NORETHINDRONE
  10. BUPROPION. [Concomitant]
     Active Substance: BUPROPION
     Dates: start: 20120320
  11. GABAPENTIN. [Concomitant]
     Active Substance: GABAPENTIN
     Dates: start: 20120320
  12. AMANTADINE. [Concomitant]
     Active Substance: AMANTADINE HYDROCHLORIDE
     Dates: start: 20190213
  13. NORTRIPTYLINE [Concomitant]
     Active Substance: NORTRIPTYLINE
     Dates: start: 20120320
  14. ABILIFY [Concomitant]
     Active Substance: ARIPIPRAZOLE
  15. VITAMIN D3 [Concomitant]
     Active Substance: CHOLECALCIFEROL
  16. OCREVUS [Suspect]
     Active Substance: OCRELIZUMAB
     Indication: MULTIPLE SCLEROSIS
     Dosage: OCREVUS 300MG/10ML    EVERY 6 MONTHS   ONGOING - YES
     Route: 042
     Dates: start: 20180813
  17. HYDROCODONE [Concomitant]
     Active Substance: HYDROCODONE
  18. ALPRAZOLAM. [Concomitant]
     Active Substance: ALPRAZOLAM
     Dates: start: 20120320

REACTIONS (1)
  - Urinary tract infection [Unknown]

NARRATIVE: CASE EVENT DATE: 20200814
